FAERS Safety Report 6536265-X (Version None)
Quarter: 2010Q1

REPORT INFORMATION
  Report Type: 
  Country: None (occurrence: None)
  Receive Date: 20100113
  Receipt Date: 20091116
  Transmission Date: 20100710
  Serious: No
  Sender: FDA-Public Use
  Company Number: US-ALLERGAN-0915873US

PATIENT
  Sex: Female

DRUGS (3)
  1. LATISSE [Suspect]
     Indication: GROWTH OF EYELASHES
     Dosage: 1 GTT, QPM
     Dates: start: 20091001
  2. THYROID SUPPLEMENT [Concomitant]
     Indication: HYPOTHYROIDISM
  3. CONTACT LENS [Concomitant]

REACTIONS (5)
  - EYE DISCHARGE [None]
  - EYE PRURITUS [None]
  - EYELIDS PRURITUS [None]
  - OCULAR HYPERAEMIA [None]
  - RASH [None]
